FAERS Safety Report 16323180 (Version 4)
Quarter: 2020Q2

REPORT INFORMATION
  Report Type: Report from Study
  Country: None (occurrence: JP)
  Receive Date: 20190517
  Receipt Date: 20200429
  Transmission Date: 20200713
  Serious: Yes (Other)
  Sender: FDA-Public Use
  Company Number: JP-ABBVIE-19K-087-2785305-00

PATIENT
  Age: 45 Year
  Sex: Female
  Weight: 42.1 kg

DRUGS (3)
  1. HUMIRA [Suspect]
     Active Substance: ADALIMUMAB
     Route: 058
     Dates: start: 20180301
  2. COLCHICINE. [Concomitant]
     Active Substance: COLCHICINE
     Indication: UVEITIS
     Route: 048
  3. HUMIRA [Suspect]
     Active Substance: ADALIMUMAB
     Indication: UVEITIS
     Route: 058
     Dates: start: 20180220, end: 201802

REACTIONS (2)
  - Neoplasm malignant [Unknown]
  - Macular oedema [Recovered/Resolved]

NARRATIVE: CASE EVENT DATE: 20190124
